FAERS Safety Report 25833229 (Version 1)
Quarter: 2025Q3

REPORT INFORMATION
  Report Type: Spontaneous
  Country: US (occurrence: US)
  Receive Date: 20250922
  Receipt Date: 20250922
  Transmission Date: 20251021
  Serious: No
  Sender: VERTEX
  Company Number: US-VERTEX PHARMACEUTICALS-2025-015352

PATIENT
  Age: 80 Year
  Sex: Male

DRUGS (5)
  1. JOURNAVX [Suspect]
     Active Substance: SUZETRIGINE
     Indication: Neuropathy peripheral
     Dosage: 100 MG (2 TABLETS -50 MG, THEN 1-50 MG TABLET 12 HOURS LATE), SINGLE
     Route: 048
     Dates: start: 20250611, end: 20250611
  2. JOURNAVX [Suspect]
     Active Substance: SUZETRIGINE
     Indication: Arthritis
     Dosage: 50MG (1 TABLETS -50 MG), BID
     Route: 048
     Dates: start: 20250612, end: 20250612
  3. JOURNAVX [Suspect]
     Active Substance: SUZETRIGINE
     Indication: Back disorder
  4. JOURNAVX [Suspect]
     Active Substance: SUZETRIGINE
     Indication: Neck pain
  5. XARELTO [Concomitant]
     Active Substance: RIVAROXABAN

REACTIONS (3)
  - Diarrhoea [Unknown]
  - Abdominal discomfort [Unknown]
  - Off label use [Unknown]

NARRATIVE: CASE EVENT DATE: 20250611
